FAERS Safety Report 19674330 (Version 1)
Quarter: 2021Q3

REPORT INFORMATION
  Report Type: Spontaneous
  Country: US (occurrence: US)
  Receive Date: 20210809
  Receipt Date: 20210809
  Transmission Date: 20211014
  Serious: Yes (Other)
  Sender: FDA-Public Use
  Company Number: US-AUROBINDO-AUR-APL-2021-033318

PATIENT
  Age: 86 Year
  Sex: Male

DRUGS (4)
  1. MINOCYCLINE [Concomitant]
     Active Substance: MINOCYCLINE HYDROCHLORIDE
     Indication: GLAUCOMA
     Dosage: 50 MILLIGRAM, TWO TIMES A DAY
     Route: 048
  2. LATANOPROST. [Suspect]
     Active Substance: LATANOPROST
     Indication: GLAUCOMA
     Dosage: UNK
     Route: 061
  3. LATANOPROST. [Suspect]
     Active Substance: LATANOPROST
     Indication: OCULAR SURFACE DISEASE
  4. MINOCYCLINE [Concomitant]
     Active Substance: MINOCYCLINE HYDROCHLORIDE
     Indication: OCULAR SURFACE DISEASE

REACTIONS (2)
  - Eye disorder [Unknown]
  - Pigmentation disorder [Unknown]
